FAERS Safety Report 5028410-2 (Version None)
Quarter: 2006Q2

REPORT INFORMATION
  Report Type: 
  Country: None (occurrence: None)
  Receive Date: 20060617
  Receipt Date: 20060607
  Transmission Date: 20061013
  Serious: Yes (Other)
  Sender: FDA-Public Use
  Company Number: PHEH2006US07472

PATIENT
  Age: 52 Year
  Sex: Female

DRUGS (1)
  1. AREDIA [Suspect]
     Indication: BREAST CANCER METASTATIC

REACTIONS (1)
  - BONE DISORDER [None]
